FAERS Safety Report 6215397-X (Version None)
Quarter: 2009Q2

REPORT INFORMATION
  Report Type: 
  Country: None (occurrence: None)
  Receive Date: 20090603
  Receipt Date: 20090114
  Transmission Date: 20091009
  Serious: No
  Sender: FDA-Public Use
  Company Number: 109-011409

PATIENT
  Sex: Female

DRUGS (1)
  1. G+W BISAC-EVAC (BISACODLY SUPPS.) 10 MG [Suspect]
     Indication: CONSTIPATION
     Dosage: RECTAL
     Route: 054

REACTIONS (2)
  - DRUG INEFFECTIVE [None]
  - PRODUCT QUALITY ISSUE [None]
